FAERS Safety Report 17915926 (Version 1)
Quarter: 2020Q2

REPORT INFORMATION
  Report Type: Spontaneous
  Country: US (occurrence: US)
  Receive Date: 20200618
  Receipt Date: 20200618
  Transmission Date: 20200714
  Serious: Yes (Hospitalization)
  Sender: FDA-Public Use
  Company Number: None

PATIENT
  Age: 80 Year
  Sex: Female

DRUGS (16)
  1. METOPROLOL TARTRATE. [Concomitant]
     Active Substance: METOPROLOL TARTRATE
  2. TRESIBA [Concomitant]
     Active Substance: INSULIN DEGLUDEC
  3. CARISOPRODOL. [Concomitant]
     Active Substance: CARISOPRODOL
  4. ESCITALOPRAM [Concomitant]
     Active Substance: ESCITALOPRAM OXALATE
  5. FEROSUL [Concomitant]
     Active Substance: FERROUS SULFATE
  6. LOPERAMIDE [Concomitant]
     Active Substance: LOPERAMIDE
  7. OCTREOTIDE. [Suspect]
     Active Substance: OCTREOTIDE
     Indication: DIARRHOEA
     Dosage: ?          OTHER FREQUENCY:EVERY 8 HOURS;?
     Route: 058
     Dates: start: 20180123
  8. LINZESS [Concomitant]
     Active Substance: LINACLOTIDE
  9. OMEPRAZOLE. [Concomitant]
     Active Substance: OMEPRAZOLE
  10. MONTELUKAST [Concomitant]
     Active Substance: MONTELUKAST SODIUM
  11. OCTREOTIDE. [Suspect]
     Active Substance: OCTREOTIDE
     Indication: IRRITABLE BOWEL SYNDROME
     Dosage: ?          OTHER FREQUENCY:EVERY 8 HOURS;?
     Route: 058
     Dates: start: 20180123
  12. ELIQUIS [Concomitant]
     Active Substance: APIXABAN
  13. GABAPENTIN. [Concomitant]
     Active Substance: GABAPENTIN
  14. LISINOPRIL. [Concomitant]
     Active Substance: LISINOPRIL
  15. SPIRONOLACTONE. [Concomitant]
     Active Substance: SPIRONOLACTONE
  16. DICYCLOMINE [Concomitant]
     Active Substance: DICYCLOMINE HYDROCHLORIDE

REACTIONS (2)
  - Therapy interrupted [None]
  - COVID-19 [None]

NARRATIVE: CASE EVENT DATE: 20200617
